FAERS Safety Report 18114278 (Version 1)
Quarter: 2020Q3

REPORT INFORMATION
  Report Type: Spontaneous
  Country: CN (occurrence: CN)
  Receive Date: 20200805
  Receipt Date: 20200805
  Transmission Date: 20201103
  Serious: Yes (Hospitalization)
  Sender: FDA-Public Use
  Company Number: CN-EMD SERONO-9178633

PATIENT
  Age: 68 Year
  Sex: Male

DRUGS (2)
  1. GLUCOPHAGE [Suspect]
     Active Substance: METFORMIN HYDROCHLORIDE
     Indication: TYPE 2 DIABETES MELLITUS
     Route: 048
     Dates: start: 20180605, end: 20200716
  2. GLIMEPIRIDE. [Suspect]
     Active Substance: GLIMEPIRIDE
     Indication: BLOOD GLUCOSE INCREASED
     Route: 048
     Dates: start: 20180712, end: 20200715

REACTIONS (1)
  - Hypoglycaemic coma [Recovering/Resolving]

NARRATIVE: CASE EVENT DATE: 20200716
